FAERS Safety Report 5197403-7 (Version None)
Quarter: 2006Q4

REPORT INFORMATION
  Report Type: 
  Country: None (occurrence: None)
  Receive Date: 20060928
  Receipt Date: 20060614
  Transmission Date: 20070319
  Serious: Yes (Other)
  Sender: FDA-Public Use
  Company Number: HQWYE234315JUN06

PATIENT
  Age: 72 Year
  Sex: Female
  Weight: 38.59 kg

DRUGS (1)
  1. RAPAMUNE [Suspect]
     Indication: IMMUNOSUPPRESSANT DRUG THERAPY
     Dosage: 1 MG 2X PER 1 DAY, ORAL
     Route: 048
     Dates: start: 20030101

REACTIONS (1)
  - LYMPHOMA [None]
